FAERS Safety Report 8307349-0 (Version None)
Quarter: 2012Q2

REPORT INFORMATION
  Report Type: 
  Country: None (occurrence: None)
  Receive Date: 20120424
  Receipt Date: 20120418
  Transmission Date: 20120825
  Serious: Yes (Hospitalization, Other)
  Sender: FDA-Public Use
  Company Number: US-BAYER-2011-011924

PATIENT
  Age: 31 Year
  Sex: Female
  Weight: 67.12 kg

DRUGS (3)
  1. AMBIEN CR [Concomitant]
     Indication: SLEEP DISORDER THERAPY
     Dosage: 12.5 MG, HS
     Dates: start: 20070601, end: 20100801
  2. YAZ [Suspect]
     Indication: ORAL CONTRACEPTION
     Dosage: UNK
     Dates: start: 20071214, end: 20080605
  3. ZOLOFT [Concomitant]
     Indication: DEPRESSION
     Dosage: 100 MG, QD
     Dates: start: 20070101

REACTIONS (10)
  - PULMONARY EMBOLISM [None]
  - CHEST PAIN [None]
  - ANXIETY [None]
  - TRAUMATIC LUNG INJURY [None]
  - EMOTIONAL DISTRESS [None]
  - PAIN [None]
  - DYSPNOEA [None]
  - STRESS [None]
  - FATIGUE [None]
  - SCAR [None]
